FAERS Safety Report 14281413 (Version 1)
Quarter: 2017Q4

REPORT INFORMATION
  Report Type: Spontaneous
  Country: US (occurrence: None)
  Receive Date: 20171213
  Receipt Date: 20171213
  Transmission Date: 20180321
  Serious: No
  Sender: FDA-Public Use
  Company Number: None

PATIENT
  Sex: Female

DRUGS (18)
  1. FOLIC ACID. [Concomitant]
     Active Substance: FOLIC ACID
  2. BREO ELLIPTA [Concomitant]
     Active Substance: FLUTICASONE FUROATE\VILANTEROL TRIFENATATE
  3. CRESTOR [Concomitant]
     Active Substance: ROSUVASTATIN CALCIUM
  4. HYDROXYCHLOR [Concomitant]
     Active Substance: HYDROXYCHLOROQUINE
  5. SINGULAIR [Concomitant]
     Active Substance: MONTELUKAST SODIUM
  6. ACTEMRA [Suspect]
     Active Substance: TOCILIZUMAB
     Indication: ANKYLOSING SPONDYLITIS
     Route: 058
     Dates: start: 20161229
  7. DYMISTA [Concomitant]
     Active Substance: AZELASTINE HYDROCHLORIDE\FLUTICASONE PROPIONATE
  8. LISINOPRIL. [Concomitant]
     Active Substance: LISINOPRIL
  9. ALPRAZOLAM. [Concomitant]
     Active Substance: ALPRAZOLAM
  10. VICODIN [Concomitant]
     Active Substance: ACETAMINOPHEN\HYDROCODONE BITARTRATE
  11. FEXOFENADRINE [Concomitant]
  12. OYST-CAL [Concomitant]
  13. HYDROCHLOROT [Concomitant]
     Active Substance: HYDROCHLOROTHIAZIDE
  14. METHOTREXATE. [Concomitant]
     Active Substance: METHOTREXATE
  15. VENTOLIN [Concomitant]
     Active Substance: ALBUTEROL SULFATE
  16. PROVENTIL [Concomitant]
     Active Substance: ALBUTEROL
  17. BUT/APAP/CAF [Concomitant]
  18. CYCOBENZAPRINE [Concomitant]

REACTIONS (3)
  - Injection site erythema [None]
  - Injection site mass [None]
  - Injection site swelling [None]
